FAERS Safety Report 10333417 (Version 2)
Quarter: 2014Q3

REPORT INFORMATION
  Report Type: Spontaneous
  Country: US (occurrence: US)
  Receive Date: 20140722
  Receipt Date: 20140805
  Transmission Date: 20150326
  Serious: Yes (Other)
  Sender: FDA-Public Use
  Company Number: US-SA-2013SA121176

PATIENT
  Age: 73 Year
  Sex: Female

DRUGS (5)
  1. ZOLPIDEM TARTRATE. [Suspect]
     Active Substance: ZOLPIDEM TARTRATE
     Indication: INSOMNIA
     Route: 065
  2. AMBIEN CR [Suspect]
     Active Substance: ZOLPIDEM TARTRATE
     Indication: INSOMNIA
     Dosage: TAKEN FROM: 2 YRS AGO
     Route: 048
  3. NASONEX [Concomitant]
     Active Substance: MOMETASONE FUROATE
  4. AMBIEN CR [Suspect]
     Active Substance: ZOLPIDEM TARTRATE
     Indication: INSOMNIA
     Dosage: DOSE: HALF TABLET
     Route: 048
  5. ADVAIR HFA [Concomitant]
     Active Substance: FLUTICASONE PROPIONATE\SALMETEROL XINAFOATE
     Indication: ASTHMA

REACTIONS (5)
  - Road traffic accident [Unknown]
  - Somnambulism [Unknown]
  - Wrong technique in drug usage process [Unknown]
  - Drug abuse [Unknown]
  - Nervous system disorder [Unknown]
